FAERS Safety Report 17216494 (Version 10)
Quarter: 2025Q1

REPORT INFORMATION
  Report Type: Spontaneous
  Country: DE (occurrence: DE)
  Receive Date: 20191230
  Receipt Date: 20250102
  Transmission Date: 20250409
  Serious: Yes (Death, Life-Threatening, Hospitalization, Other)
  Sender: AUROBINDO
  Company Number: DE-GLAXOSMITHKLINE-DE2019EME142804

PATIENT
  Age: 52 Year
  Sex: Female
  Weight: 52 kg

DRUGS (35)
  1. ACYCLOVIR [Suspect]
     Active Substance: ACYCLOVIR
     Indication: Systemic lupus erythematosus
     Dosage: 400 MILLIGRAM, 3 TIMES A DAY
     Route: 065
  2. ACYCLOVIR [Suspect]
     Active Substance: ACYCLOVIR
     Dosage: 1200 MILLIGRAM, ONCE A DAY
     Route: 065
  3. ACYCLOVIR [Suspect]
     Active Substance: ACYCLOVIR
     Dosage: 400 MILLIGRAM, ONCE A DAY
     Route: 065
  4. FLUVASTATIN [Suspect]
     Active Substance: FLUVASTATIN SODIUM
     Indication: Systemic lupus erythematosus
     Dosage: 1 DOSAGE FORM, ONCE A DAY (QD 20 (0-0-1)
     Route: 065
  5. FLUVASTATIN [Suspect]
     Active Substance: FLUVASTATIN SODIUM
     Route: 065
  6. FLUVASTATIN [Suspect]
     Active Substance: FLUVASTATIN SODIUM
     Dosage: 1 DOSAGE FORM, ONCE A DAY
     Route: 065
  7. VALSARTAN [Suspect]
     Active Substance: VALSARTAN
     Indication: Systemic lupus erythematosus
     Dosage: 2 DOSAGE FORM, ONCE A DAY (160 (1-0-1)
     Route: 065
  8. VALSARTAN [Suspect]
     Active Substance: VALSARTAN
     Dosage: 1 DOSAGE FORM, ONCE A DAY
     Route: 065
  9. AZATHIOPRINE [Suspect]
     Active Substance: AZATHIOPRINE
     Indication: White blood cell count decreased
     Route: 065
     Dates: start: 1997, end: 2008
  10. AZATHIOPRINE [Suspect]
     Active Substance: AZATHIOPRINE
     Indication: Systemic lupus erythematosus
     Dosage: 50 MILLIGRAM, EVERY WEEK
     Route: 065
     Dates: start: 20100419, end: 201904
  11. AZATHIOPRINE [Suspect]
     Active Substance: AZATHIOPRINE
     Indication: Lymphopenia
     Route: 065
     Dates: start: 201906, end: 201907
  12. BENLYSTA [Suspect]
     Active Substance: BELIMUMAB
     Indication: White blood cell count decreased
     Dosage: 200 MILLIGRAM/KILOGRAM, EVERY WEEK
     Route: 058
     Dates: start: 201708, end: 201904
  13. BENLYSTA [Suspect]
     Active Substance: BELIMUMAB
     Indication: Systemic lupus erythematosus
     Dosage: 200 MILLIGRAM/KILOGRAM, EVERY WEEK
     Route: 058
     Dates: start: 201806, end: 201807
  14. BENLYSTA [Suspect]
     Active Substance: BELIMUMAB
     Dosage: 10 MILLIGRAM/KILOGRAM, EVERY WEEK
     Route: 058
     Dates: start: 201711, end: 201812
  15. DETRUSITOL [Suspect]
     Active Substance: TOLTERODINE TARTRATE
     Indication: Systemic lupus erythematosus
     Route: 065
  16. ELIQUIS [Suspect]
     Active Substance: APIXABAN
     Indication: Systemic lupus erythematosus
     Route: 065
  17. LEVOTHYROXINE [Suspect]
     Active Substance: LEVOTHYROXINE
     Indication: Systemic lupus erythematosus
     Route: 065
  18. MOLSIDOMINE [Suspect]
     Active Substance: MOLSIDOMINE
     Indication: Systemic lupus erythematosus
     Dosage: 1 DOSAGE FORM, ONCE A DAY (QD 8 RET (0-0-1)
     Route: 065
  19. MOLSIDOMINE [Suspect]
     Active Substance: MOLSIDOMINE
     Route: 065
  20. PREDNISOLONE [Suspect]
     Active Substance: PREDNISOLONE
     Indication: Systemic lupus erythematosus
     Dosage: 5 MILLIGRAM, ONCE A DAY
     Route: 065
     Dates: start: 1988
  21. PENTACARINAT [Suspect]
     Active Substance: PENTAMIDINE ISETHIONATE
     Indication: Systemic lupus erythematosus
     Route: 055
     Dates: start: 201904
  22. MORPHINE [Suspect]
     Active Substance: MORPHINE
     Indication: Systemic lupus erythematosus
     Route: 065
  23. HYDROXYCHLOROQUINE [Concomitant]
     Active Substance: HYDROXYCHLOROQUINE
     Indication: Product used for unknown indication
     Route: 065
     Dates: start: 1994, end: 1997
  24. HYDROXYCHLOROQUINE [Concomitant]
     Active Substance: HYDROXYCHLOROQUINE
     Dosage: 200 MILLIGRAM, ONCE A DAY (0-0-1)
     Route: 065
     Dates: start: 2008
  25. MCP [Concomitant]
     Active Substance: METOCLOPRAMIDE HYDROCHLORIDE
     Indication: Product used for unknown indication
     Dosage: 3 DOSAGE FORM, ONCE A DAY
     Route: 065
  26. NITRENDIPINE [Concomitant]
     Active Substance: NITRENDIPINE
     Indication: Product used for unknown indication
     Route: 065
  27. EZETIMIBE [Concomitant]
     Active Substance: EZETIMIBE
     Indication: Product used for unknown indication
     Dosage: 1 DOSAGE FORM, ONCE A DAY (QD 10 (0-0-1)
     Route: 065
  28. ISDN [Concomitant]
     Indication: Product used for unknown indication
     Dosage: 2 DOSAGE FORM, ONCE A DAY (BID20 RET (1-1-0)
     Route: 065
  29. Sab simplex [Concomitant]
     Indication: Product used for unknown indication
     Dosage: 30 GTT DROPS, 3 TIMES A DAY
     Route: 065
  30. CHOLECALCIFEROL [Concomitant]
     Active Substance: CHOLECALCIFEROL
     Indication: Product used for unknown indication
     Dosage: 1 DOSAGE FORM, EVERY WEEK (WE, 20000)
     Route: 065
  31. UMECLIDINIUM BROMIDE\VILANTEROL TRIFENATATE [Concomitant]
     Active Substance: UMECLIDINIUM BROMIDE\VILANTEROL TRIFENATATE
     Indication: Product used for unknown indication
     Route: 055
  32. LEVOTHYROXINE SODIUM [Concomitant]
     Active Substance: LEVOTHYROXINE SODIUM
     Indication: Product used for unknown indication
     Dosage: 1 DOSAGE FORM, ONCE A DAY, QD 50 (1-0-0)
     Route: 065
  33. MORPHINE [Concomitant]
     Active Substance: MORPHINE
     Indication: Product used for unknown indication
     Dosage: 2 DOSAGE FORM, ONCE A DAY (BID 30 RET (1-0-1)
     Route: 065
  34. DULOXETINE [Concomitant]
     Active Substance: DULOXETINE
     Indication: Product used for unknown indication
     Dosage: 1 DOSAGE FORM, ONCE A DAY (QD 30 (1-0-0)
     Route: 065
  35. LAXATAN M [Concomitant]
     Indication: Product used for unknown indication
     Route: 065

REACTIONS (31)
  - Peritonitis [Fatal]
  - Lymphopenia [Fatal]
  - Sepsis [Fatal]
  - Pneumocystis jirovecii pneumonia [Fatal]
  - Osteonecrosis [Unknown]
  - Herpes simplex reactivation [Unknown]
  - Leukopenia [Unknown]
  - Hypothyroidism [Unknown]
  - Gastritis haemorrhagic [Unknown]
  - Antiphospholipid syndrome [Unknown]
  - Thrombocytopenia [Unknown]
  - Colitis ulcerative [Unknown]
  - Skin disorder [Unknown]
  - Drug hypersensitivity [Unknown]
  - Pleuritic pain [Unknown]
  - Urinary tract infection [Unknown]
  - Systemic lupus erythematosus [Unknown]
  - Hypertension [Unknown]
  - Antinuclear antibody negative [Unknown]
  - Gastrooesophageal reflux disease [Unknown]
  - Coombs positive haemolytic anaemia [Unknown]
  - Complex regional pain syndrome [Unknown]
  - Hyperlipidaemia [Unknown]
  - Depression [Unknown]
  - Erysipelas [Unknown]
  - Pancreatitis acute [Unknown]
  - Fall [Unknown]
  - Anxiety disorder [Unknown]
  - Intentional product use issue [Unknown]
  - Off label use [Unknown]
  - Product use in unapproved indication [Unknown]

NARRATIVE: CASE EVENT DATE: 19900101
